FAERS Safety Report 19611240 (Version 1)
Quarter: 2021Q3

REPORT INFORMATION
  Report Type: Spontaneous
  Country: US (occurrence: US)
  Receive Date: 20210726
  Receipt Date: 20210726
  Transmission Date: 20211014
  Serious: Yes (Other)
  Sender: FDA-Public Use
  Company Number: US-ENDO PHARMACEUTICALS INC-2020-005001

PATIENT
  Age: 66 Year
  Sex: Male
  Weight: 72.56 kg

DRUGS (14)
  1. EDEX [Suspect]
     Active Substance: ALPROSTADIL
     Indication: ERECTILE DYSFUNCTION
     Dosage: 40 MCG
     Route: 065
     Dates: start: 20200708
  2. EDEX [Suspect]
     Active Substance: ALPROSTADIL
     Indication: ERECTILE DYSFUNCTION
     Dosage: 40 MCG
     Route: 065
     Dates: start: 20200708
  3. EDEX [Suspect]
     Active Substance: ALPROSTADIL
     Dosage: 20 MCG, UNKNOWN
     Route: 065
     Dates: start: 202007
  4. EDEX [Suspect]
     Active Substance: ALPROSTADIL
     Dosage: 20 MCG, UNKNOWN
     Route: 065
     Dates: start: 202007
  5. EDEX [Suspect]
     Active Substance: ALPROSTADIL
     Indication: ERECTILE DYSFUNCTION
     Dosage: 40 MCG
     Route: 065
     Dates: start: 20200708
  6. MULTIVITAMINS                      /00116001/ [Concomitant]
     Active Substance: VITAMINS
     Indication: PRODUCT USED FOR UNKNOWN INDICATION
     Dosage: UNK UNKNOWN, UNKNOWN
     Route: 065
  7. TAMSULOSIN [Concomitant]
     Active Substance: TAMSULOSIN
     Indication: PRODUCT USED FOR UNKNOWN INDICATION
     Dosage: UNK UNKNOWN, UNKNOWN
     Route: 065
  8. EDEX [Suspect]
     Active Substance: ALPROSTADIL
     Dosage: 30 MCG, UNKNOWN
     Route: 065
  9. EDEX [Suspect]
     Active Substance: ALPROSTADIL
     Dosage: 30 MCG, UNKNOWN
     Route: 065
  10. ATORVASTATIN [Concomitant]
     Active Substance: ATORVASTATIN
     Indication: PRODUCT USED FOR UNKNOWN INDICATION
     Dosage: UNK UNKNOWN, UNKNOWN
     Route: 065
  11. FINASTERIDE. [Concomitant]
     Active Substance: FINASTERIDE
     Indication: PRODUCT USED FOR UNKNOWN INDICATION
     Dosage: UNK UNKNOWN, UNKNOWN
     Route: 065
  12. EDEX [Suspect]
     Active Substance: ALPROSTADIL
     Dosage: 30 MCG, UNKNOWN
     Route: 065
  13. EDEX [Suspect]
     Active Substance: ALPROSTADIL
     Dosage: 20 MCG, UNKNOWN
     Route: 065
     Dates: start: 202007
  14. PANTOPRAZOLE [Concomitant]
     Active Substance: PANTOPRAZOLE
     Indication: PRODUCT USED FOR UNKNOWN INDICATION
     Dosage: UNK UNKNOWN, UNKNOWN
     Route: 065

REACTIONS (5)
  - Erection increased [Recovered/Resolved]
  - Intentional product use issue [Unknown]
  - Product communication issue [Unknown]
  - Painful erection [Recovered/Resolved]
  - Anhedonia [Unknown]

NARRATIVE: CASE EVENT DATE: 202006
